FAERS Safety Report 4516304-8 (Version None)
Quarter: 2004Q4

REPORT INFORMATION
  Report Type: 
  Country: None (occurrence: None)
  Receive Date: 20041005
  Receipt Date: 20040608
  Transmission Date: 20050328
  Serious: Yes (Other)
  Sender: FDA-Public Use
  Company Number: 04-226-0772

PATIENT
  Sex: Male
  Weight: 72.5755 kg

DRUGS (1)
  1. HALOPERIDOL DECANOATE [Suspect]
     Indication: SCHIZOPHRENIA
     Dosage: 200 MG IM Q 4 WKS
     Route: 030
     Dates: start: 20040526

REACTIONS (1)
  - INJECTION SITE REACTION [None]
